FAERS Safety Report 7500017-4 (Version None)
Quarter: 2011Q2

REPORT INFORMATION
  Report Type: 
  Country: None (occurrence: None)
  Receive Date: 20110524
  Receipt Date: 20110322
  Transmission Date: 20111010
  Serious: No
  Sender: FDA-Public Use
  Company Number: US-NOVEN-11US002062

PATIENT
  Sex: Male

DRUGS (7)
  1. DAYTRANA [Suspect]
     Indication: DISTURBANCE IN ATTENTION
  2. FENTANYL [Concomitant]
     Indication: PAIN
     Route: 062
  3. ROZEREM [Concomitant]
     Indication: SLEEP DISORDER
     Route: 048
  4. DAYTRANA [Suspect]
     Indication: AMNESIA
     Dosage: 10 MG, QD X 9 HRS
     Route: 062
     Dates: start: 20110322
  5. PERCOCET [Concomitant]
     Indication: PAIN
     Route: 048
  6. XANAX [Concomitant]
     Indication: ANXIETY
     Route: 048
  7. THYROID MEDICINE [Concomitant]
     Indication: THYROID DISORDER
     Dosage: 1 UNK, QD
     Route: 048

REACTIONS (3)
  - PRODUCT QUALITY ISSUE [None]
  - OFF LABEL USE [None]
  - DRUG INEFFECTIVE FOR UNAPPROVED INDICATION [None]
